FAERS Safety Report 9103133 (Version 2)
Quarter: 2013Q1

REPORT INFORMATION
  Report Type: Spontaneous
  Country: DK (occurrence: None)
  Receive Date: 20130125
  Receipt Date: 20130204
  Transmission Date: 20140127
  Serious: Yes (Hospitalization, Other)
  Sender: FDA-Public Use
  Company Number: 2013SP000887

PATIENT
  Age: 75 Year
  Sex: Female
  Weight: 65 kg

DRUGS (10)
  1. FLUOROURACIL (FLUOROURACIL) [Suspect]
     Indication: BREAST CANCER
     Route: 042
  2. EPIRUBICIN [Suspect]
     Indication: BREAST CANCER
     Route: 042
  3. CYCLOPHOSPHAMIDE (CYCLOPHOSPHAMIDE) [Suspect]
     Indication: BREAST CANCER
     Route: 042
  4. PEGFILGRASTIM (PEGFILGRASTIM) [Suspect]
     Indication: PRODUCT USED FOR UNKNOWN INDICATION
  5. PREDNISOLONE [Concomitant]
  6. ONDANSETRON [Concomitant]
  7. APREPITANT [Concomitant]
  8. EMPERAL [Concomitant]
  9. MULTIVITAMINS [Concomitant]
  10. IRON [Concomitant]

REACTIONS (4)
  - Febrile neutropenia [None]
  - Fatigue [None]
  - Platelet count decreased [None]
  - White blood cell count decreased [None]
